FAERS Safety Report 20657376 (Version 1)
Quarter: 2022Q1

REPORT INFORMATION
  Report Type: Spontaneous
  Country: US (occurrence: US)
  Receive Date: 20220331
  Receipt Date: 20220331
  Transmission Date: 20220423
  Serious: Yes (Hospitalization, Disabling, Other)
  Sender: FDA-Public Use
  Company Number: US-SPECGX-T202200399

PATIENT
  Age: 47 Year
  Sex: Male

DRUGS (1)
  1. FENTANYL CITRATE [Suspect]
     Active Substance: FENTANYL CITRATE
     Indication: Substance use
     Dosage: UNK
     Route: 065

REACTIONS (4)
  - Wound infection [Unknown]
  - Imprisonment [Unknown]
  - Bacteraemia [Unknown]
  - Substance abuse [Unknown]
